FAERS Safety Report 12287510 (Version 1)
Quarter: 2016Q2

REPORT INFORMATION
  Report Type: Spontaneous
  Country: US (occurrence: US)
  Receive Date: 20160420
  Receipt Date: 20160420
  Transmission Date: 20160815
  Serious: Yes (Death, Life-Threatening, Hospitalization)
  Sender: FDA-Public Use
  Company Number: US-SA-2016SA078417

PATIENT
  Age: 60 Year
  Sex: Male
  Weight: 80.73 kg

DRUGS (27)
  1. BERAPROST SODIUM [Suspect]
     Active Substance: BERAPROST SODIUM
     Indication: PULMONARY ARTERIAL HYPERTENSION
     Dosage: TOTAL DAILY DOSE:120 MCG
     Route: 048
  2. VICODIN [Concomitant]
     Active Substance: ACETAMINOPHEN\HYDROCODONE BITARTRATE
     Indication: OSTEOARTHRITIS
     Dosage: 15-1500 MG
     Route: 048
     Dates: start: 20090106
  3. PAROXETINE. [Concomitant]
     Active Substance: PAROXETINE
     Indication: DEPRESSION
     Route: 048
  4. TYVASO [Suspect]
     Active Substance: TREPROSTINIL
     Indication: PULMONARY ARTERIAL HYPERTENSION
     Dosage: TOTAL DOSE:5.4 MILLIGRAM(S)/MILLILITRE
     Route: 055
  5. BERAPROST SODIUM [Suspect]
     Active Substance: BERAPROST SODIUM
     Indication: PULMONARY ARTERIAL HYPERTENSION
     Dosage: TOTAL DAILY DOSE:120 MCG
     Route: 048
     Dates: start: 20141015, end: 20150305
  6. COUMADIN [Concomitant]
     Active Substance: WARFARIN SODIUM
     Indication: PULMONARY ARTERIAL HYPERTENSION
     Route: 048
     Dates: start: 20090423
  7. ITRACONAZOLE. [Concomitant]
     Active Substance: ITRACONAZOLE
     Indication: CELLULITIS
     Route: 048
     Dates: start: 20141105, end: 201502
  8. ITRACONAZOLE. [Concomitant]
     Active Substance: ITRACONAZOLE
     Indication: ABSCESS LIMB
     Route: 048
     Dates: start: 20141105, end: 201502
  9. TYVASO [Suspect]
     Active Substance: TREPROSTINIL
     Indication: PULMONARY ARTERIAL HYPERTENSION
     Dosage: TOTAL
     Route: 055
  10. PAXIL [Concomitant]
     Active Substance: PAROXETINE HYDROCHLORIDE
     Indication: HYPERTENSION
     Route: 048
     Dates: start: 20130531
  11. MELOXICAM. [Concomitant]
     Active Substance: MELOXICAM
     Indication: OSTEOARTHRITIS
     Route: 048
     Dates: start: 20131230
  12. SYMBICORT [Concomitant]
     Active Substance: BUDESONIDE\FORMOTEROL FUMARATE DIHYDRATE
     Indication: PULMONARY ARTERIAL HYPERTENSION
     Dosage: 80 MG TOTAL DAILY DOSE INHALED FOR PULMONARY ARTERIAL HYPERTENSION
     Route: 055
     Dates: start: 20131230
  13. LETAIRIS [Concomitant]
     Active Substance: AMBRISENTAN
     Indication: PULMONARY ARTERIAL HYPERTENSION
     Route: 048
     Dates: start: 20090106
  14. ALLOPURINOL. [Concomitant]
     Active Substance: ALLOPURINOL
     Indication: GOUT
     Route: 048
     Dates: start: 20090909
  15. LASIX [Suspect]
     Active Substance: FUROSEMIDE
     Indication: OEDEMA
     Dosage: FREQUENCY:40 MG TOTAL DAILY DOSE
     Route: 048
     Dates: start: 20131230
  16. TYVASO [Suspect]
     Active Substance: TREPROSTINIL
     Indication: PULMONARY ARTERIAL HYPERTENSION
     Route: 055
     Dates: end: 20160305
  17. REVATIO [Concomitant]
     Active Substance: SILDENAFIL CITRATE
     Indication: HYPERTENSION
     Route: 048
     Dates: start: 20090106
  18. PAXIL [Concomitant]
     Active Substance: PAROXETINE HYDROCHLORIDE
     Indication: DEPRESSION
     Route: 048
     Dates: start: 20130531
  19. BACITRACIN. [Concomitant]
     Active Substance: BACITRACIN
     Indication: ABSCESS LIMB
     Dosage: 500 UNREPORTED UNITS, FOUR TIMES PER DAY, TOPICAL
     Route: 061
     Dates: start: 20141022
  20. PAROXETINE. [Concomitant]
     Active Substance: PAROXETINE
     Indication: OBSESSIVE-COMPULSIVE DISORDER
     Route: 048
  21. LASIX [Suspect]
     Active Substance: FUROSEMIDE
     Indication: OEDEMA
     Dosage: FREQUENCY:40 MG TOTAL DAILY DOSE
     Route: 048
     Dates: start: 20090417
  22. BUMETANIDE. [Concomitant]
     Active Substance: BUMETANIDE
     Indication: HYPERTENSION
     Route: 048
     Dates: start: 20131230
  23. FENTANYL. [Concomitant]
     Active Substance: FENTANYL
     Indication: OSTEOARTHRITIS
     Dosage: , TRANSDARMAL PATCH, 100 UNREPORTED UNITS, TOTAL DAILY DOSE
     Dates: start: 20100728
  24. BACITRACIN. [Concomitant]
     Active Substance: BACITRACIN
     Indication: CELLULITIS
     Dosage: 500 UNREPORTED UNITS, FOUR TIMES PER DAY, TOPICAL
     Route: 061
     Dates: start: 20141022
  25. TYVASO [Suspect]
     Active Substance: TREPROSTINIL
     Indication: PULMONARY ARTERIAL HYPERTENSION
     Dosage: STRENGTH: 0.6 MG/ML
     Route: 055
     Dates: start: 20140602
  26. INDOMETHACIN. [Concomitant]
     Active Substance: INDOMETHACIN
     Indication: GOUT
     Route: 048
     Dates: start: 20131230
  27. REVATIO [Concomitant]
     Active Substance: SILDENAFIL CITRATE
     Indication: PULMONARY ARTERIAL HYPERTENSION
     Route: 048
     Dates: start: 20090106

REACTIONS (9)
  - Metabolic encephalopathy [Recovered/Resolved]
  - Respiratory failure [Fatal]
  - Endocarditis [Recovered/Resolved]
  - Cerebral infarction [Recovered/Resolved]
  - Cerebral artery embolism [Recovered/Resolved]
  - Sinusitis [Recovering/Resolving]
  - Deep vein thrombosis [Recovered/Resolved]
  - Acute kidney injury [Recovering/Resolving]
  - Extradural abscess [Recovered/Resolved]

NARRATIVE: CASE EVENT DATE: 20150305
